FAERS Safety Report 20606142 (Version 1)
Quarter: 2022Q1

REPORT INFORMATION
  Report Type: Report from Study
  Country: PE (occurrence: PE)
  Receive Date: 20220317
  Receipt Date: 20220317
  Transmission Date: 20220423
  Serious: Yes (Death, Other)
  Sender: FDA-Public Use
  Company Number: PE-NOVARTISPH-NVSC2022PE061425

PATIENT
  Age: 47 Year
  Sex: Female

DRUGS (1)
  1. KISQALI [Suspect]
     Active Substance: RIBOCICLIB
     Indication: Breast cancer metastatic
     Dosage: 200 MG, QD
     Route: 048
     Dates: start: 20210211

REACTIONS (3)
  - Death [Fatal]
  - Pulmonary oedema [Unknown]
  - Malaise [Unknown]

NARRATIVE: CASE EVENT DATE: 20220228
